FAERS Safety Report 20087217 (Version 1)
Quarter: 2021Q4

REPORT INFORMATION
  Report Type: Spontaneous
  Country: US (occurrence: None)
  Receive Date: 20211118
  Receipt Date: 20211118
  Transmission Date: 20220303
  Serious: Yes (Hospitalization)
  Sender: FDA-Public Use
  Company Number: None

PATIENT
  Age: 86 Year
  Sex: Female

DRUGS (3)
  1. DOFETILIDE [Suspect]
     Active Substance: DOFETILIDE
     Indication: Product used for unknown indication
     Dosage: FREQUENCY : EVERY 12 HOURS;?
     Route: 048
     Dates: start: 20210524
  2. METOPROL TAR [Concomitant]
  3. LOSARTAN POTASSIUM [Concomitant]
     Active Substance: LOSARTAN POTASSIUM

REACTIONS (3)
  - Fall [None]
  - Hip fracture [None]
  - Lower limb fracture [None]

NARRATIVE: CASE EVENT DATE: 20210831
